FAERS Safety Report 11896892 (Version 2)
Quarter: 2016Q1

REPORT INFORMATION
  Report Type: Spontaneous
  Country: BE (occurrence: BE)
  Receive Date: 20160107
  Receipt Date: 20160115
  Transmission Date: 20160526
  Serious: Yes (Death, Life-Threatening)
  Sender: FDA-Public Use
  Company Number: BE-B.I. PHARMACEUTICALS,INC./RIDGEFIELD-2015-BI-47267BL

PATIENT
  Age: 55 Year
  Sex: Female
  Weight: 68 kg

DRUGS (20)
  1. OXYCONTIN [Concomitant]
     Active Substance: OXYCODONE HYDROCHLORIDE
     Indication: METASTASES TO BONE
  2. PANTOMED [Concomitant]
     Active Substance: DEXPANTHENOL
     Indication: GASTROOESOPHAGEAL REFLUX PROPHYLAXIS
     Dosage: 20 MG
     Route: 048
     Dates: start: 20150313, end: 20151120
  3. LYSANXIA [Concomitant]
     Active Substance: PRAZEPAM
     Indication: ANXIETY
     Dosage: 15 ANZ
     Route: 048
     Dates: start: 20151109, end: 20151120
  4. MIDAZOLAM [Concomitant]
     Active Substance: MIDAZOLAM\MIDAZOLAM HYDROCHLORIDE
     Indication: SEDATIVE THERAPY
     Dosage: 35 MG
     Route: 042
     Dates: start: 20151203, end: 20151206
  5. VARGATEF [Suspect]
     Active Substance: NINTEDANIB
     Indication: NON-SMALL CELL LUNG CANCER
     Dosage: 400 MG
     Route: 048
     Dates: start: 20150805, end: 20151005
  6. OXYNORM [Concomitant]
     Active Substance: OXYCODONE HYDROCHLORIDE
     Indication: PAIN
     Dosage: INSTANT
     Route: 048
     Dates: start: 20150313, end: 20151120
  7. SCOPOLAMINE [Concomitant]
     Active Substance: SCOPOLAMINE
     Indication: RESPIRATORY DISORDER
     Dosage: 0.5 MG
     Route: 042
     Dates: start: 20151125, end: 20151206
  8. TAXOTERE [Suspect]
     Active Substance: DOCETAXEL
     Indication: NON-SMALL CELL LUNG CANCER
     Dosage: DOSE PER APPLICATION: 75 MG/M2
     Route: 042
     Dates: start: 20150805, end: 20150902
  9. INNOHEP [Concomitant]
     Active Substance: TINZAPARIN SODIUM
     Indication: THROMBOSIS PROPHYLAXIS
     Route: 058
     Dates: start: 20150415, end: 20151115
  10. CATAPRESSAN [Concomitant]
     Active Substance: CLONIDINE
     Indication: PAIN
     Dosage: 300 MG
     Route: 048
     Dates: start: 20151123, end: 20151206
  11. OXYCONTIN [Concomitant]
     Active Substance: OXYCODONE HYDROCHLORIDE
     Indication: PAIN
     Dosage: 160 MG
     Route: 048
     Dates: start: 20150313, end: 20151120
  12. LAXOBERON [Concomitant]
     Active Substance: SODIUM PICOSULFATE
     Indication: CONSTIPATION
     Dosage: 15 ANZ
     Route: 048
     Dates: start: 20151108, end: 20151117
  13. MIDAZOLAM [Concomitant]
     Active Substance: MIDAZOLAM\MIDAZOLAM HYDROCHLORIDE
     Dosage: 35 MG
     Route: 042
     Dates: start: 20151123, end: 20151206
  14. XGEVA [Concomitant]
     Active Substance: DENOSUMAB
     Indication: METASTASES TO BONE
     Route: 058
     Dates: start: 20150313, end: 20151120
  15. OXYNORM [Concomitant]
     Active Substance: OXYCODONE HYDROCHLORIDE
     Indication: METASTASES TO BONE
  16. LACTULOSE. [Concomitant]
     Active Substance: LACTULOSE
     Indication: CONSTIPATION
     Dosage: DAILY DOSE AND DOSE PER APPLICATION: 2 SACHETS.
     Route: 048
     Dates: start: 20151118, end: 20151120
  17. DEXAMETHASONE. [Concomitant]
     Active Substance: DEXAMETHASONE
     Indication: ANTIINFLAMMATORY THERAPY
     Dosage: 5 MG
     Route: 042
     Dates: start: 20151108, end: 20151123
  18. TEMESTA [Concomitant]
     Active Substance: LORAZEPAM
     Indication: SEDATIVE THERAPY
     Dosage: 4 MG
     Route: 042
     Dates: start: 20151120, end: 20151206
  19. ZOPICLONE [Concomitant]
     Active Substance: ZOPICLONE
     Indication: INSOMNIA
     Dosage: 7.5 MG
     Route: 048
     Dates: start: 20150220, end: 20151120
  20. MORPHINE [Concomitant]
     Active Substance: MORPHINE
     Indication: PAIN
     Dosage: 100 MG
     Route: 042
     Dates: start: 20151105, end: 20151206

REACTIONS (13)
  - Herpes zoster [Not Recovered/Not Resolved]
  - Nausea [Unknown]
  - Decreased appetite [Unknown]
  - Cerebral haemorrhage [Fatal]
  - Asthenia [Unknown]
  - Fatigue [Unknown]
  - Vomiting [Unknown]
  - Asthenia [Recovered/Resolved]
  - Hyperhidrosis [Recovered/Resolved]
  - Nausea [Recovered/Resolved]
  - Vomiting [Recovered/Resolved]
  - Decreased appetite [Recovered/Resolved]
  - Asthenia [Unknown]

NARRATIVE: CASE EVENT DATE: 20150806
